FAERS Safety Report 7944762-5 (Version None)
Quarter: 2011Q4

REPORT INFORMATION
  Report Type: 
  Country: None (occurrence: None)
  Receive Date: 20111122
  Receipt Date: 20110818
  Transmission Date: 20120403
  Serious: No
  Sender: FDA-Public Use
  Company Number: PHHY2011US64995

PATIENT
  Age: 30 Year
  Sex: Female

DRUGS (10)
  1. VITAMIN B NOS (VITAMIN B NOS) [Concomitant]
  2. VITAMINS (ASCORBIC ACID, ERGOCALCIFEROL, NICOTINAMIDE, RETINOL, RIBOFL [Concomitant]
  3. GILENYA [Suspect]
     Indication: MULTIPLE SCLEROSIS
     Dosage: 0.5 MG, DAILY, ORAL
     Route: 048
     Dates: start: 20110620
  4. VITAMIN E [Concomitant]
  5. AMPHETAMINE SULFATE [Concomitant]
  6. PATANOL [Concomitant]
  7. ADDERALL (AMFETAMINE ASPARTATE, AMFETAMINE, SULATE, DEXAMFETAMINE SACC [Concomitant]
  8. VITAMIN D [Concomitant]
  9. ASCORBIC ACID [Concomitant]
  10. EYE DROPS (TETRYZOLINE HYDROCHLORIDE) [Concomitant]

REACTIONS (16)
  - HYPOAESTHESIA [None]
  - HEADACHE [None]
  - EYE DISCHARGE [None]
  - SKIN DISCOLOURATION [None]
  - SINUS DISORDER [None]
  - MIGRAINE [None]
  - VISUAL IMPAIRMENT [None]
  - RHINORRHOEA [None]
  - EYE SWELLING [None]
  - NASOPHARYNGITIS [None]
  - WEIGHT DECREASED [None]
  - EYE PAIN [None]
  - EYE ALLERGY [None]
  - EXOPHTHALMOS [None]
  - LACRIMATION INCREASED [None]
  - VISION BLURRED [None]
